FAERS Safety Report 14786139 (Version 1)
Quarter: 2018Q2

REPORT INFORMATION
  Report Type: Spontaneous
  Country: US (occurrence: US)
  Receive Date: 20180420
  Receipt Date: 20180420
  Transmission Date: 20180711
  Serious: Yes (Death)
  Sender: FDA-Public Use
  Company Number: US-CELGENEUS-USA-20180406325

PATIENT
  Age: 50 Year
  Sex: Male

DRUGS (3)
  1. POMALYST [Suspect]
     Active Substance: POMALIDOMIDE
     Indication: PLASMA CELL MYELOMA
     Dosage: 4 MILLIGRAM
     Route: 048
     Dates: start: 201606
  2. POMALYST [Suspect]
     Active Substance: POMALIDOMIDE
     Dosage: 4 MILLIGRAM
     Route: 048
     Dates: start: 201801
  3. POMALYST [Suspect]
     Active Substance: POMALIDOMIDE
     Indication: NEUTROPENIA
     Dosage: 1 MILLIGRAM
     Route: 048
     Dates: start: 20170705

REACTIONS (1)
  - Death [Fatal]

NARRATIVE: CASE EVENT DATE: 20180306
